FAERS Safety Report 4374056-9 (Version None)
Quarter: 2004Q2

REPORT INFORMATION
  Report Type: 
  Country: None (occurrence: None)
  Receive Date: 20040607
  Receipt Date: 20030918
  Transmission Date: 20050107
  Serious: Yes (Hospitalization)
  Sender: FDA-Public Use
  Company Number: US-AMGEN-US048286

PATIENT
  Sex: Female
  Weight: 61.23 kg

DRUGS (4)
  1. ENBREL [Suspect]
     Indication: RHEUMATOID ARTHRITIS
     Route: 058
     Dates: start: 20011001
  2. SYNTHROID [Concomitant]
     Dates: start: 19810101
  3. ALDOMET [Concomitant]
     Dates: start: 19700101
  4. DYAZIDE [Concomitant]
     Dates: start: 19700101

REACTIONS (7)
  - HYPERKERATOSIS [None]
  - INGROWING NAIL [None]
  - OSTEOMYELITIS [None]
  - PURULENCE [None]
  - SKIN ULCER [None]
  - SPINAL FUSION ACQUIRED [None]
  - TOE AMPUTATION [None]
